FAERS Safety Report 5418281-4 (Version None)
Quarter: 2007Q3

REPORT INFORMATION
  Report Type: 
  Country: None (occurrence: None)
  Receive Date: 20070817
  Receipt Date: 20070809
  Transmission Date: 20080115
  Serious: Yes (Other)
  Sender: FDA-Public Use
  Company Number: D0054259A

PATIENT
  Age: 29 Year
  Sex: Female
  Weight: 73 kg

DRUGS (3)
  1. LAMICTAL [Suspect]
     Indication: TRICHOTILLOMANIA
     Dosage: 25MG PER DAY
     Route: 048
     Dates: start: 20060520, end: 20060522
  2. TRUXAL [Suspect]
     Indication: SLEEP DISORDER
     Dosage: 50MG AT NIGHT
     Route: 048
     Dates: start: 20060428, end: 20060526
  3. TREVILOR [Concomitant]
     Indication: DEPRESSION
     Dosage: 150MG IN THE MORNING
     Route: 048
     Dates: start: 20060221, end: 20061001

REACTIONS (5)
  - COORDINATION ABNORMAL [None]
  - DYSARTHRIA [None]
  - DYSKINESIA [None]
  - GAZE PALSY [None]
  - TORTICOLLIS [None]
